FAERS Safety Report 4316275-3 (Version None)
Quarter: 2004Q1

REPORT INFORMATION
  Report Type: 
  Country: None (occurrence: None)
  Receive Date: 20040310
  Receipt Date: 20030423
  Transmission Date: 20041129
  Serious: Yes (Other)
  Sender: FDA-Public Use
  Company Number: HQWYE918224APR03

PATIENT
  Age: 74 Year
  Sex: Female
  Weight: 66.28 kg

DRUGS (2)
  1. PROTONIX [Suspect]
     Dosage: 40 MG 1 X PER DAY, ORAL
     Route: 048
     Dates: start: 20030301, end: 20030301
  2. LIPITOR [Concomitant]

REACTIONS (2)
  - ABDOMINAL PAIN UPPER [None]
  - BLADDER SPASM [None]
